FAERS Safety Report 25718086 (Version 1)
Quarter: 2025Q3

REPORT INFORMATION
  Report Type: Spontaneous
  Country: CH (occurrence: CH)
  Receive Date: 20250823
  Receipt Date: 20250823
  Transmission Date: 20251021
  Serious: Yes (Death, Other)
  Sender: ACCORD
  Company Number: CH-MLMSERVICE-20250805-PI604199-00097-4

PATIENT
  Age: 27 Year
  Sex: Female
  Weight: 35 kg

DRUGS (3)
  1. MYCOPHENOLATE MOFETIL [Suspect]
     Active Substance: MYCOPHENOLATE MOFETIL
     Indication: Immunosuppressant drug therapy
  2. CYCLOSPORINE [Suspect]
     Active Substance: CYCLOSPORINE
     Indication: Immunosuppressant drug therapy
  3. PREDNISONE [Suspect]
     Active Substance: PREDNISONE
     Indication: Immunosuppressant drug therapy
     Dosage: MAINTENANCE DOSE 0.1 MG/KG/DAY, BODY WEIGHT 35 KG

REACTIONS (6)
  - Adenocarcinoma gastric [Unknown]
  - Hypercoagulation [Unknown]
  - Venous thrombosis [Unknown]
  - Pulmonary embolism [Fatal]
  - Right ventricular failure [Fatal]
  - Metastases to lymph nodes [Unknown]

NARRATIVE: CASE EVENT DATE: 20130101
